FAERS Safety Report 8766971 (Version 2)
Quarter: 2012Q4

REPORT INFORMATION
  Report Type: Report from Study
  Country: US (occurrence: US)
  Receive Date: 20120904
  Receipt Date: 20120910
  Transmission Date: 20130627
  Serious: Yes (Hospitalization)
  Sender: FDA-Public Use
  Company Number: US-US-EMD SERONO, INC.-7157352

PATIENT
  Age: 44 Year
  Sex: Female
  Weight: 63 kg

DRUGS (5)
  1. REBIF [Suspect]
     Indication: RELAPSING-REMITTING MULTIPLE SCLEROSIS
     Route: 058
     Dates: start: 20100816, end: 20120807
  2. PROVIGIL [Concomitant]
     Indication: FATIGUE
  3. WELLBUTRIN [Concomitant]
     Indication: MULTIPLE SCLEROSIS
  4. TOPAMAX [Concomitant]
     Indication: MIGRAINE
  5. SIMVASTATIN [Concomitant]
     Indication: HYPERLIPIDAEMIA

REACTIONS (3)
  - Septic shock [Recovered/Resolved]
  - Injection site cellulitis [Recovered/Resolved]
  - Post-traumatic stress disorder [Not Recovered/Not Resolved]
